FAERS Safety Report 16129136 (Version 1)
Quarter: 2019Q1

REPORT INFORMATION
  Report Type: Spontaneous
  Country: ES (occurrence: ES)
  Receive Date: 20190328
  Receipt Date: 20190328
  Transmission Date: 20190418
  Serious: No
  Sender: FDA-Public Use
  Company Number: ES-B. BRAUN MEDICAL INC.-2064847

PATIENT
  Sex: Male

DRUGS (1)
  1. DEXTROSE INJECTIONS USP 0264-7510-00 0264-7510-20 [Suspect]
     Active Substance: DEXTROSE

REACTIONS (2)
  - Wrong technique in product usage process [Unknown]
  - Hyperglycaemia [Unknown]
